FAERS Safety Report 11229364 (Version 4)
Quarter: 2016Q2

REPORT INFORMATION
  Report Type: Spontaneous
  Country: JP (occurrence: JP)
  Receive Date: 20150630
  Receipt Date: 20160426
  Transmission Date: 20160815
  Serious: Yes (Death, Other)
  Sender: FDA-Public Use
  Company Number: PHHY2015JP076572

PATIENT
  Age: 66 Year
  Sex: Female

DRUGS (7)
  1. DORIPENEM [Concomitant]
     Active Substance: DORIPENEM
     Indication: PYREXIA
     Dosage: 500 MG, Q6H
     Route: 065
  2. VORICONAZOLE. [Suspect]
     Active Substance: VORICONAZOLE
     Indication: SCEDOSPORIUM INFECTION
     Dosage: 6 MG/KG, Q12H, FOR THE FIRST 24 H
     Route: 065
  3. VORICONAZOLE. [Suspect]
     Active Substance: VORICONAZOLE
     Dosage: 4 MG/KG, Q12H
     Route: 065
  4. TERBINAFINE. [Suspect]
     Active Substance: TERBINAFINE
     Indication: SCEDOSPORIUM INFECTION
     Dosage: 250 MG, Q12H
     Route: 048
  5. FILGRASTIM [Concomitant]
     Active Substance: FILGRASTIM
     Indication: NEUTROPENIA
     Dosage: 300 UL, QD
     Route: 065
  6. VANCOMYCIN [Concomitant]
     Active Substance: VANCOMYCIN
     Indication: PYREXIA
     Dosage: 1 G, Q12H
     Route: 065
  7. AMPHOTERICIN B, LIPOSOME [Suspect]
     Active Substance: AMPHOTERICIN B
     Indication: SCEDOSPORIUM INFECTION
     Dosage: 5 MG/KG, QD
     Route: 065

REACTIONS (9)
  - Multiple organ dysfunction syndrome [Fatal]
  - Product use issue [Unknown]
  - Scedosporium infection [Fatal]
  - Cerebral infarction [Unknown]
  - Endocarditis [Unknown]
  - Pneumonia [Unknown]
  - Septic embolus [Unknown]
  - Hemiplegia [Unknown]
  - Infection [Fatal]
